FAERS Safety Report 14208430 (Version 1)
Quarter: 2017Q4

REPORT INFORMATION
  Report Type: Other
  Country: US (occurrence: US)
  Receive Date: 20171121
  Receipt Date: 20171121
  Transmission Date: 20180321
  Serious: Yes (Other)
  Sender: FDA-Public Use
  Company Number: US-VELOXIS PHARMACEUTICALS-2034756

PATIENT
  Age: 9 Year
  Sex: Female

DRUGS (9)
  1. MYCOPHENOLATE MOFETIL. [Concomitant]
     Active Substance: MYCOPHENOLATE MOFETIL
  2. PREDNISONE. [Concomitant]
     Active Substance: PREDNISONE
  3. VALGANCICLOVIR. [Concomitant]
     Active Substance: VALGANCICLOVIR
  4. CYCLOSPORINE. [Concomitant]
     Active Substance: CYCLOSPORINE
  5. DIFLUPREDNATE [Concomitant]
     Active Substance: DIFLUPREDNATE
  6. DEXAMETHASONE W/NEOMYCIN SULFATE/POLYMYXIN B SULFATE [Concomitant]
  7. SULFAMETHOXAZOLE AND TRIMETHOPRIM [Concomitant]
     Active Substance: SULFAMETHOXAZOLE\TRIMETHOPRIM
  8. ENVARSUS XR [Suspect]
     Active Substance: TACROLIMUS
     Indication: TRANSPLANT
  9. LEVOFLOXACIN. [Concomitant]
     Active Substance: LEVOFLOXACIN

REACTIONS (5)
  - Ulcerative keratitis [Recovered/Resolved]
  - Transplant rejection [Recovered/Resolved]
  - Neutropenia [Unknown]
  - Intentional product use issue [Unknown]
  - Infective keratitis [Recovered/Resolved]
